FAERS Safety Report 19692546 (Version 1)
Quarter: 2021Q3

REPORT INFORMATION
  Report Type: Spontaneous
  Country: PL (occurrence: PL)
  Receive Date: 20210812
  Receipt Date: 20210812
  Transmission Date: 20211014
  Serious: Yes (Other)
  Sender: FDA-Public Use
  Company Number: PL-PFIZER INC-202101004299

PATIENT
  Age: 50 Year
  Sex: Female

DRUGS (6)
  1. SULPHASALAZINE [Concomitant]
     Active Substance: SULFASALAZINE
     Dosage: UNK
     Route: 065
     Dates: start: 2018
  2. ADALIMUMAB [Suspect]
     Active Substance: ADALIMUMAB
     Dosage: UNK
     Route: 065
  3. METHOTREXATE SODIUM. [Suspect]
     Active Substance: METHOTREXATE SODIUM
     Dosage: UNK UNK, WEEKLY (17.5?25 MG )
     Route: 065
  4. METHYLPREDNISOLONE. [Suspect]
     Active Substance: METHYLPREDNISOLONE
     Dosage: 8 MG, 1X/DAY
     Route: 065
  5. ACITRETIN. [Suspect]
     Active Substance: ACITRETIN
     Dosage: 30 MG, 1X/DAY
     Route: 065
  6. CYCLOSPORINE. [Suspect]
     Active Substance: CYCLOSPORINE
     Dosage: 200 MG, 1X/DAY
     Route: 065

REACTIONS (14)
  - Oedema [Unknown]
  - Cardiac failure chronic [Unknown]
  - Drug ineffective [Unknown]
  - Blood pressure increased [Unknown]
  - Pain [Unknown]
  - Peripheral venous disease [Unknown]
  - Osteoarthritis [Unknown]
  - Blood creatinine increased [Unknown]
  - Obesity [Unknown]
  - Hypertension [Unknown]
  - Depression [Unknown]
  - Atrial fibrillation [Unknown]
  - Circulatory collapse [Unknown]
  - Dyspnoea [Unknown]
